FAERS Safety Report 4961901-9 (Version None)
Quarter: 2006Q1

REPORT INFORMATION
  Report Type: 
  Country: None (occurrence: None)
  Receive Date: 20060329
  Receipt Date: 20060313
  Transmission Date: 20060701
  Serious: Yes (Other)
  Sender: FDA-Public Use
  Company Number: TRP_0729_2006

PATIENT
  Age: 57 Year
  Sex: Female

DRUGS (3)
  1. RIBASPHERE [Suspect]
     Indication: HEPATITIS C
     Dosage: DF PO
     Route: 048
     Dates: start: 20051118
  2. PEG-INTRON [Suspect]
     Indication: HEPATITIS C
     Dosage: DF SC
     Route: 048
     Dates: start: 20051118
  3. ACTINAL [Concomitant]

REACTIONS (4)
  - FEELING ABNORMAL [None]
  - FEELING JITTERY [None]
  - HALLUCINATION [None]
  - INSOMNIA [None]
